FAERS Safety Report 22291976 (Version 1)
Quarter: 2023Q2

REPORT INFORMATION
  Report Type: Spontaneous
  Country: DE (occurrence: DE)
  Receive Date: 20230508
  Receipt Date: 20230508
  Transmission Date: 20230721
  Serious: No
  Sender: FDA-Public Use
  Company Number: None

PATIENT
  Sex: Female

DRUGS (15)
  1. ROSUVASTATIN [Suspect]
     Active Substance: ROSUVASTATIN
     Indication: Vertebral artery stenosis
     Dosage: UNK
     Route: 065
     Dates: start: 20200121, end: 20200626
  2. ROSUVASTATIN [Suspect]
     Active Substance: ROSUVASTATIN
     Indication: Carotid artery stenosis
  3. ATORVASTATIN CALCIUM [Suspect]
     Active Substance: ATORVASTATIN CALCIUM
     Indication: Carotid artery stenosis
     Dosage: UNK, 10 MILLIGRAM
     Route: 065
     Dates: start: 202006, end: 20200930
  4. ATORVASTATIN CALCIUM [Suspect]
     Active Substance: ATORVASTATIN CALCIUM
     Indication: Vertebral artery stenosis
     Dosage: UNK, 40 MILLIGRAM
     Route: 065
     Dates: start: 202112, end: 202203
  5. ATORVASTATIN CALCIUM [Suspect]
     Active Substance: ATORVASTATIN CALCIUM
     Indication: Acute myocardial infarction
  6. EZETIMIBE [Suspect]
     Active Substance: EZETIMIBE
     Indication: Acute myocardial infarction
     Dosage: UNK
     Route: 065
     Dates: start: 20220331
  7. FLUVASTATIN [Suspect]
     Active Substance: FLUVASTATIN SODIUM
     Indication: Carotid artery stenosis
     Dosage: UNK
     Route: 065
     Dates: end: 20221129
  8. FLUVASTATIN [Suspect]
     Active Substance: FLUVASTATIN SODIUM
     Indication: Vertebral artery stenosis
     Dosage: UNK
     Route: 065
     Dates: start: 2021, end: 2021
  9. FLUVASTATIN [Suspect]
     Active Substance: FLUVASTATIN SODIUM
     Dosage: UNK
     Route: 065
     Dates: start: 20220511, end: 20220629
  10. SIMVASTATIN [Suspect]
     Active Substance: SIMVASTATIN
     Indication: Arteriosclerosis
     Dosage: UNK
     Route: 065
     Dates: start: 201506
  11. SIMVASTATIN [Suspect]
     Active Substance: SIMVASTATIN
     Indication: Vertebral artery stenosis
     Dosage: UNK, 20 MG
     Route: 065
     Dates: start: 202010, end: 202011
  12. SIMVASTATIN [Suspect]
     Active Substance: SIMVASTATIN
     Indication: Carotid artery stenosis
  13. PRAVASTATIN [Suspect]
     Active Substance: PRAVASTATIN
     Indication: Vertebral artery stenosis
     Dosage: UNK
     Route: 065
     Dates: start: 20201112, end: 202105
  14. PRAVASTATIN [Suspect]
     Active Substance: PRAVASTATIN
     Indication: Carotid artery stenosis
  15. BEMPEDOIC ACID [Suspect]
     Active Substance: BEMPEDOIC ACID
     Indication: Acute myocardial infarction
     Dosage: UNK
     Route: 065
     Dates: start: 2022, end: 20220908

REACTIONS (9)
  - Arthralgia [Unknown]
  - Nausea [Unknown]
  - Therapeutic product effect decreased [Unknown]
  - Abdominal pain upper [Recovered/Resolved]
  - Adverse drug reaction [Recovered/Resolved]
  - Sleep disorder [Recovered/Resolved]
  - Dizziness [Recovered/Resolved]
  - Myalgia [Recovered/Resolved]
  - Restless legs syndrome [Recovered/Resolved]
